FAERS Safety Report 6743070-8 (Version None)
Quarter: 2010Q2

REPORT INFORMATION
  Report Type: 
  Country: None (occurrence: None)
  Receive Date: 20100527
  Receipt Date: 20100519
  Transmission Date: 20101027
  Serious: Yes (Hospitalization)
  Sender: FDA-Public Use
  Company Number: IT-JNJFOC-20100204013

PATIENT
  Sex: Female

DRUGS (10)
  1. HALDOL [Suspect]
     Indication: PSYCHOMOTOR HYPERACTIVITY
     Route: 048
  2. HALDOL [Suspect]
     Route: 048
  3. TALOFEN [Suspect]
     Indication: PSYCHOMOTOR HYPERACTIVITY
     Route: 048
  4. TALOFEN [Suspect]
     Route: 048
  5. LANSOPRAZOLE [Concomitant]
     Indication: DRUG USE FOR UNKNOWN INDICATION
     Route: 048
  6. XALATAN [Concomitant]
     Indication: DRUG USE FOR UNKNOWN INDICATION
     Route: 047
  7. BETOPTIC [Concomitant]
     Indication: GLAUCOMA
     Route: 047
  8. AZOPT [Concomitant]
     Indication: GLAUCOMA
     Route: 047
  9. KARVEA [Concomitant]
     Indication: HYPERTENSION
     Route: 048
  10. ASPIRIN [Concomitant]
     Indication: DRUG USE FOR UNKNOWN INDICATION
     Route: 048

REACTIONS (3)
  - DEHYDRATION [None]
  - DRUG TOXICITY [None]
  - SOPOR [None]
